FAERS Safety Report 12634237 (Version 1)
Quarter: 2016Q3

REPORT INFORMATION
  Report Type: Spontaneous
  Country: US (occurrence: US)
  Receive Date: 20160808
  Receipt Date: 20160808
  Transmission Date: 20161109
  Serious: No
  Sender: FDA-Public Use
  Company Number: US-CELGENEUS-USA-2016080161

PATIENT
  Sex: Female
  Weight: 49.94 kg

DRUGS (1)
  1. REVLIMID [Suspect]
     Active Substance: LENALIDOMIDE
     Indication: PLASMA CELL MYELOMA
     Dosage: 15 MILLIGRAM
     Route: 048
     Dates: start: 201602

REACTIONS (7)
  - Contusion [Unknown]
  - Gait disturbance [Unknown]
  - Back pain [Unknown]
  - Peripheral swelling [Unknown]
  - Weight decreased [Unknown]
  - Decreased appetite [Unknown]
  - Hyperphagia [Unknown]

NARRATIVE: CASE EVENT DATE: 2016
